FAERS Safety Report 5844597-3 (Version None)
Quarter: 2008Q3

REPORT INFORMATION
  Report Type: 
  Country: None (occurrence: None)
  Receive Date: 20080812
  Receipt Date: 20080725
  Transmission Date: 20090109
  Serious: Yes (Other)
  Sender: FDA-Public Use
  Company Number: 2008BI017558

PATIENT
  Age: 59 Year
  Sex: Female

DRUGS (6)
  1. ZEVALIN [Suspect]
     Indication: NON-HODGKIN'S LYMPHOMA
     Dosage: 27 MCI; QM; IV
     Route: 042
     Dates: start: 20070419, end: 20070419
  2. RITUXIMAB [Concomitant]
  3. CARMUSTINE [Concomitant]
  4. ETOPOSIDE [Concomitant]
  5. CYTARABINE [Concomitant]
  6. MEPHALAN [Concomitant]

REACTIONS (6)
  - BASOPHIL COUNT DECREASED [None]
  - DIARRHOEA [None]
  - ENTEROCOCCAL INFECTION [None]
  - HYPOTENSION [None]
  - MUCOSAL INFLAMMATION [None]
  - PYREXIA [None]
